FAERS Safety Report 6111383-9 (Version None)
Quarter: 2009Q1

REPORT INFORMATION
  Report Type: 
  Country: None (occurrence: None)
  Receive Date: 20090311
  Receipt Date: 20090304
  Transmission Date: 20090719
  Serious: Yes (Hospitalization)
  Sender: FDA-Public Use
  Company Number: B0563145A

PATIENT
  Age: 80 Year
  Sex: Female

DRUGS (4)
  1. ARIXTRA [Suspect]
     Indication: PULMONARY EMBOLISM
     Dosage: 7.5MG PER DAY
     Route: 058
     Dates: start: 20081231, end: 20090109
  2. PLAVIX [Suspect]
     Indication: DRUG USE FOR UNKNOWN INDICATION
     Route: 065
     Dates: end: 20090110
  3. COUMADIN [Suspect]
     Indication: DRUG USE FOR UNKNOWN INDICATION
     Route: 048
     Dates: start: 20090105, end: 20090110
  4. COLCHIMAX [Suspect]
     Indication: ARTHRITIS
     Route: 065
     Dates: start: 20090102

REACTIONS (6)
  - ARTHRITIS [None]
  - DRUG INTERACTION [None]
  - INTERNATIONAL NORMALISED RATIO INCREASED [None]
  - MUSCLE HAEMORRHAGE [None]
  - RED BLOOD CELL COUNT DECREASED [None]
  - SHOCK HAEMORRHAGIC [None]
